FAERS Safety Report 6972014-9 (Version None)
Quarter: 2010Q3

REPORT INFORMATION
  Report Type: 
  Country: None (occurrence: None)
  Receive Date: 20100908
  Receipt Date: 20100908
  Transmission Date: 20110219
  Serious: Yes (Disabling)
  Sender: FDA-Public Use
  Company Number: None

PATIENT
  Age: 50 Year
  Sex: Female
  Weight: 86.1834 kg

DRUGS (2)
  1. ZICAM, ORALMIST, ZICAM LLC PHOENIX [Suspect]
     Indication: NASOPHARYNGITIS
     Dosage: 4 SPRAYS EVERY 3 HOURS ORAL
     Route: 048
     Dates: start: 20090101
  2. VITAMINS ? - (MULTI) [Concomitant]

REACTIONS (3)
  - HYPOSMIA [None]
  - NO THERAPEUTIC RESPONSE [None]
  - PHARYNGEAL HYPOAESTHESIA [None]
